FAERS Safety Report 10165963 (Version 1)
Quarter: 2014Q2

REPORT INFORMATION
  Report Type: Spontaneous
  Country: US (occurrence: US)
  Receive Date: 20140511
  Receipt Date: 20140511
  Transmission Date: 20141212
  Serious: No
  Sender: FDA-Public Use
  Company Number: US-HORIZON-DUE-0013-2014

PATIENT
  Age: 33 Year
  Sex: Female

DRUGS (3)
  1. DUEXIS [Suspect]
     Indication: TENDONITIS
     Dosage: FIRST DOSE OF DUEXIS
     Dates: end: 20140206
  2. ABILIFY [Concomitant]
  3. IBUPROFEN [Concomitant]
     Indication: SINUS OPERATION

REACTIONS (2)
  - Diarrhoea [Unknown]
  - Vomiting [Unknown]
